FAERS Safety Report 18157103 (Version 1)
Quarter: 2020Q3

REPORT INFORMATION
  Report Type: Report from Study
  Country: US (occurrence: US)
  Receive Date: 20200817
  Receipt Date: 20200817
  Transmission Date: 20201103
  Serious: Yes (Other)
  Sender: FDA-Public Use
  Company Number: US-SA-2015SA145637

PATIENT

DRUGS (1)
  1. ALEMTUZUMAB [Suspect]
     Active Substance: ALEMTUZUMAB
     Indication: MULTIPLE SCLEROSIS
     Dosage: 12 MG,QD
     Route: 041
     Dates: start: 20150914, end: 20150918

REACTIONS (12)
  - Blood count abnormal [Unknown]
  - Immunosuppression [Unknown]
  - Feeling cold [Unknown]
  - Sleep deficit [Unknown]
  - Cerebral disorder [Unknown]
  - Disturbance in attention [Unknown]
  - Hyperreflexia [Unknown]
  - Off label use [Unknown]
  - Hangover [Unknown]
  - Fatigue [Unknown]
  - Burning sensation [Not Recovered/Not Resolved]
  - Pain [Unknown]

NARRATIVE: CASE EVENT DATE: 2015
